FAERS Safety Report 23705338 (Version 1)
Quarter: 2024Q2

REPORT INFORMATION
  Report Type: Report from Study
  Country: US (occurrence: None)
  Receive Date: 20240404
  Receipt Date: 20240404
  Transmission Date: 20240716
  Serious: Yes (Other)
  Sender: FDA-Public Use
  Company Number: 2024A075172

PATIENT
  Sex: Female

DRUGS (1)
  1. LYNPARZA [Suspect]
     Active Substance: OLAPARIB
     Indication: Uterine cancer
     Route: 048
     Dates: start: 20240109

REACTIONS (4)
  - Full blood count decreased [Unknown]
  - Malignant neoplasm progression [Unknown]
  - Depression [Unknown]
  - Product dose omission issue [Unknown]
